FAERS Safety Report 7915000-4 (Version None)
Quarter: 2011Q4

REPORT INFORMATION
  Report Type: 
  Country: None (occurrence: None)
  Receive Date: 20111115
  Receipt Date: 20111107
  Transmission Date: 20120403
  Serious: No
  Sender: FDA-Public Use
  Company Number: GB-SANOFI-AVENTIS-2011SA073244

PATIENT
  Sex: Female

DRUGS (1)
  1. ARAVA [Suspect]
     Dosage: ROUTE: THROUGH CONCEPTION.

REACTIONS (1)
  - EXPOSURE VIA FATHER [None]
